FAERS Safety Report 9389013 (Version 2)
Quarter: 2014Q3

REPORT INFORMATION
  Report Type: Report from Study
  Country: US (occurrence: US)
  Receive Date: 20130708
  Receipt Date: 20140723
  Transmission Date: 20150326
  Serious: Yes (Hospitalization)
  Sender: FDA-Public Use
  Company Number: US-PFIZER INC-2013198323

PATIENT
  Age: 59 Year
  Sex: Female
  Weight: 90.34 kg

DRUGS (33)
  1. BLINDED BUPROPION HCL [Suspect]
     Active Substance: BUPROPION HYDROCHLORIDE
     Indication: SMOKING CESSATION THERAPY
     Dosage: BLINDED THERAPY, 2X/DAY
     Route: 048
     Dates: start: 20130201, end: 20130425
  2. LISINOPRIL. [Concomitant]
     Active Substance: LISINOPRIL
     Indication: HYPERTENSION
     Dosage: UNK
  3. CALCIUM WITH VITAMIN D [Concomitant]
     Active Substance: CALCIUM\VITAMIN D
     Indication: NUTRITIONAL SUPPLEMENTATION
     Dosage: UNK
  4. IBUPROFEN. [Concomitant]
     Active Substance: IBUPROFEN
     Indication: ARTHRITIS
     Dosage: UNK
  5. GABAPENTIN. [Concomitant]
     Active Substance: GABAPENTIN
     Indication: PAIN IN EXTREMITY
     Dosage: UNK
  6. BLINDED VARENICLINE TARTRATE [Suspect]
     Active Substance: VARENICLINE TARTRATE
     Indication: SMOKING CESSATION THERAPY
     Dosage: BLINDED THERAPY, 2X/DAY
     Route: 048
     Dates: start: 20130201, end: 20130425
  7. BLINDED NICOTINE [Suspect]
     Active Substance: NICOTINE
     Dosage: BLINDED THERAPY, 1X/DAY
     Route: 062
     Dates: start: 20130208, end: 20130426
  8. PLACEBO [Suspect]
     Active Substance: UNSPECIFIED INGREDIENT
     Dosage: BLINDED THERAPY, 1X/DAY
     Route: 062
     Dates: start: 20130208, end: 20130426
  9. BLINDED VARENICLINE TARTRATE [Suspect]
     Active Substance: VARENICLINE TARTRATE
     Dosage: BLINDED THERAPY, 1X/DAY
     Route: 062
     Dates: start: 20130208, end: 20130426
  10. MELATONIN [Concomitant]
     Active Substance: MELATONIN
     Indication: SLEEP DISORDER
     Dosage: UNK
  11. MELATONIN [Concomitant]
     Active Substance: MELATONIN
     Indication: INSOMNIA
  12. BLINDED BUPROPION HCL [Suspect]
     Active Substance: BUPROPION HYDROCHLORIDE
     Indication: SMOKING CESSATION THERAPY
     Dosage: BLINDED THERAPY, 2X/DAY
     Route: 048
     Dates: start: 20130201, end: 20130425
  13. BLINDED NICOTINE [Suspect]
     Active Substance: NICOTINE
     Indication: SMOKING CESSATION THERAPY
     Dosage: BLINDED THERAPY, 2X/DAY
     Route: 048
     Dates: start: 20130201, end: 20130425
  14. BLINDED NICOTINE [Suspect]
     Active Substance: NICOTINE
     Indication: SMOKING CESSATION THERAPY
     Dosage: BLINDED THERAPY, 2X/DAY
     Route: 048
     Dates: start: 20130201, end: 20130425
  15. BLINDED VARENICLINE TARTRATE [Suspect]
     Active Substance: VARENICLINE TARTRATE
     Indication: SMOKING CESSATION THERAPY
     Dosage: BLINDED THERAPY, 2X/DAY
     Route: 048
     Dates: start: 20130201, end: 20130425
  16. BLINDED NICOTINE [Suspect]
     Active Substance: NICOTINE
     Dosage: BLINDED THERAPY, 1X/DAY
     Route: 062
     Dates: start: 20130208, end: 20130426
  17. PLACEBO [Suspect]
     Active Substance: UNSPECIFIED INGREDIENT
     Dosage: BLINDED THERAPY, 1X/DAY
     Route: 062
     Dates: start: 20130208, end: 20130426
  18. AMLODIPINE BESILATE [Suspect]
     Active Substance: AMLODIPINE BESYLATE
     Indication: HYPERTENSION
     Dosage: 10 MG, 1X/DAY
     Route: 048
     Dates: start: 2012
  19. DEPAKOTE [Concomitant]
     Active Substance: DIVALPROEX SODIUM
     Indication: BIPOLAR DISORDER
     Dosage: UNK
  20. PRAVASTATIN [Concomitant]
     Active Substance: PRAVASTATIN\PRAVASTATIN SODIUM
     Indication: HYPERCHOLESTEROLAEMIA
     Dosage: UNK
  21. BLINDED BUPROPION HCL [Suspect]
     Active Substance: BUPROPION HYDROCHLORIDE
     Dosage: BLINDED THERAPY, 1X/DAY
     Route: 062
     Dates: start: 20130208, end: 20130426
  22. BLINDED BUPROPION HCL [Suspect]
     Active Substance: BUPROPION HYDROCHLORIDE
     Dosage: BLINDED THERAPY, 1X/DAY
     Route: 062
     Dates: start: 20130208, end: 20130426
  23. PLACEBO [Suspect]
     Active Substance: UNSPECIFIED INGREDIENT
     Dosage: BLINDED THERAPY, 1X/DAY
     Route: 062
     Dates: start: 20130208, end: 20130426
  24. PLACEBO [Suspect]
     Active Substance: UNSPECIFIED INGREDIENT
     Indication: SMOKING CESSATION THERAPY
     Dosage: BLINDED THERAPY, 2X/DAY
     Route: 048
     Dates: start: 20130201, end: 20130425
  25. METFORMIN [Concomitant]
     Active Substance: METFORMIN HYDROCHLORIDE
     Indication: TYPE 2 DIABETES MELLITUS
     Dosage: UNK
  26. GABAPENTIN. [Concomitant]
     Active Substance: GABAPENTIN
     Indication: ARTHRALGIA
  27. PLACEBO [Suspect]
     Active Substance: UNSPECIFIED INGREDIENT
     Indication: SMOKING CESSATION THERAPY
     Dosage: BLINDED THERAPY, 2X/DAY
     Route: 048
     Dates: start: 20130201, end: 20130425
  28. BLINDED VARENICLINE TARTRATE [Suspect]
     Active Substance: VARENICLINE TARTRATE
     Dosage: BLINDED THERAPY, 1X/DAY
     Route: 062
     Dates: start: 20130208, end: 20130426
  29. ZOLOFT [Concomitant]
     Active Substance: SERTRALINE HYDROCHLORIDE
     Indication: BIPOLAR DISORDER
     Dosage: UNK
  30. RISPERDAL [Concomitant]
     Active Substance: RISPERIDONE
     Indication: BIPOLAR DISORDER
     Dosage: UNK
  31. IBUPROFEN. [Concomitant]
     Active Substance: IBUPROFEN
     Indication: MIGRAINE
  32. PLACEBO [Suspect]
     Active Substance: UNSPECIFIED INGREDIENT
     Indication: SMOKING CESSATION THERAPY
     Dosage: BLINDED THERAPY, 2X/DAY
     Route: 048
     Dates: start: 20130201, end: 20130425
  33. ASPIRIN. [Suspect]
     Active Substance: ASPIRIN
     Indication: CARDIOVASCULAR EVENT PROPHYLAXIS
     Dosage: 81 MG, 1X/DAY
     Route: 048
     Dates: start: 2011

REACTIONS (1)
  - Non-cardiac chest pain [Recovered/Resolved]

NARRATIVE: CASE EVENT DATE: 20130629
